FAERS Safety Report 15218556 (Version 1)
Quarter: 2018Q3

REPORT INFORMATION
  Report Type: Spontaneous
  Country: US (occurrence: US)
  Receive Date: 20180704
  Receipt Date: 20180704
  Transmission Date: 20181010
  Serious: Yes (Disabling)
  Sender: FDA-Public Use
  Company Number: None

PATIENT
  Age: 50 Year
  Sex: Female
  Weight: 63 kg

DRUGS (3)
  1. CLINDAMYCIN 300MG CAP RANBAXY [Suspect]
     Active Substance: CLINDAMYCIN
     Indication: ANTIBIOTIC PROPHYLAXIS
     Dosage: ?          QUANTITY:1 CAPSULE(S);?
     Route: 048
     Dates: start: 20180514, end: 20180521
  2. VANCOMYCIN [Concomitant]
     Active Substance: VANCOMYCIN
  3. FLORASTOR [Concomitant]
     Active Substance: SACCHAROMYCES CEREVISIAE

REACTIONS (2)
  - Clostridium difficile infection [None]
  - Diarrhoea [None]

NARRATIVE: CASE EVENT DATE: 20180605
